FAERS Safety Report 4612359-0 (Version None)
Quarter: 2005Q1

REPORT INFORMATION
  Report Type: 
  Country: None (occurrence: None)
  Receive Date: 20050316
  Receipt Date: 20050301
  Transmission Date: 20050727
  Serious: Yes (Other)
  Sender: FDA-Public Use
  Company Number: USA050392118

PATIENT
  Age: 87 Year
  Sex: Female

DRUGS (1)
  1. EVISTA [Suspect]
     Indication: OSTEOPOROSIS
     Dosage: 60 MG
     Dates: start: 20040101, end: 20050101

REACTIONS (3)
  - BONE DENSITY DECREASED [None]
  - PATELLA FRACTURE [None]
  - STRESS FRACTURE [None]
